FAERS Safety Report 8005166-2 (Version None)
Quarter: 2011Q4

REPORT INFORMATION
  Report Type: 
  Country: None (occurrence: None)
  Receive Date: 20111223
  Receipt Date: 20111219
  Transmission Date: 20120403
  Serious: Yes (Other)
  Sender: FDA-Public Use
  Company Number: PHEH2011US012111

PATIENT
  Age: 79 Year
  Sex: Male

DRUGS (1)
  1. TOBI [Suspect]
     Dosage: 300 MG, TWICE DAILY IN A CYCLE OF 28 DAYS ON , 28 DAYS OFF
     Dates: start: 20110927

REACTIONS (1)
  - VASCULAR PSEUDOANEURYSM [None]
